FAERS Safety Report 5896967-5 (Version None)
Quarter: 2008Q3

REPORT INFORMATION
  Report Type: 
  Country: None (occurrence: None)
  Receive Date: 20080924
  Receipt Date: 20080613
  Transmission Date: 20090109
  Serious: Yes (Other)
  Sender: FDA-Public Use
  Company Number: US-ASTRAZENECA-2008UW01511

PATIENT
  Age: 51 Year
  Sex: Female
  Weight: 68 kg

DRUGS (4)
  1. SEROQUEL [Suspect]
     Indication: DEPRESSION
     Dosage: VARIOUS DOSES
     Route: 048
     Dates: start: 20010801, end: 20070601
  2. PHEN-FEN [Concomitant]
     Indication: WEIGHT CONTROL
     Route: 048
     Dates: start: 19980101
  3. ZOLOFT [Concomitant]
     Dates: start: 20050101
  4. WELLBUTRIN [Concomitant]
     Dates: start: 20010101

REACTIONS (5)
  - BLOOD CHOLESTEROL INCREASED [None]
  - BLOOD TRIGLYCERIDES INCREASED [None]
  - CARDIAC DISORDER [None]
  - CONVULSION [None]
  - DIABETES MELLITUS [None]
